FAERS Safety Report 4309360-3 (Version None)
Quarter: 2004Q1

REPORT INFORMATION
  Report Type: 
  Country: None (occurrence: None)
  Receive Date: 20040302
  Receipt Date: 20000224
  Transmission Date: 20041129
  Serious: Yes (Hospitalization)
  Sender: FDA-Public Use
  Company Number: WAES 00033443

PATIENT
  Age: 76 Year
  Sex: Female
  Weight: 70 kg

DRUGS (10)
  1. PROTAPHANE HM [Concomitant]
  2. ASPIRIN [Concomitant]
  3. DILTIAZEM [Concomitant]
  4. FAMOTIDINE [Concomitant]
  5. FUROSEMIDE [Concomitant]
  6. INSULIN [Concomitant]
  7. ISOSORBIDE-5-MONONITRATE [Concomitant]
  8. ZOCOR [Suspect]
     Indication: HYPERCHOLESTEROLAEMIA
     Route: 048
     Dates: start: 19970101, end: 19990501
  9. ZOCOR [Suspect]
     Route: 048
     Dates: start: 19990501, end: 19991129
  10. ZOCOR [Suspect]
     Route: 048
     Dates: start: 19991130, end: 19991231

REACTIONS (13)
  - ALANINE AMINOTRANSFERASE INCREASED [None]
  - ASPARTATE AMINOTRANSFERASE INCREASED [None]
  - BLOOD CREATINE PHOSPHOKINASE INCREASED [None]
  - BLOOD CREATININE INCREASED [None]
  - BLOOD LACTATE DEHYDROGENASE INCREASED [None]
  - MUSCLE CRAMP [None]
  - MUSCULAR WEAKNESS [None]
  - MYALGIA [None]
  - MYOGLOBINURIA [None]
  - PARESIS [None]
  - RED BLOOD CELL SEDIMENTATION RATE INCREASED [None]
  - RENAL IMPAIRMENT [None]
  - RHABDOMYOLYSIS [None]
